FAERS Safety Report 25282484 (Version 1)
Quarter: 2025Q2

REPORT INFORMATION
  Report Type: Spontaneous
  Country: US (occurrence: US)
  Receive Date: 20250508
  Receipt Date: 20250508
  Transmission Date: 20250717
  Serious: No
  Sender: SUNOVION
  Company Number: US-SMPA-2025SPA004597AA

PATIENT

DRUGS (7)
  1. ORGOVYX [Suspect]
     Active Substance: RELUGOLIX
     Indication: Prostate cancer
     Dosage: 360 MG, SINGLE
     Route: 048
     Dates: start: 20250401, end: 20250401
  2. ORGOVYX [Suspect]
     Active Substance: RELUGOLIX
     Dosage: 120 MG, QD
     Route: 048
     Dates: start: 20250402
  3. ATORVASTATIN [Concomitant]
     Active Substance: ATORVASTATIN
     Route: 065
  4. VITAMINS [Concomitant]
     Active Substance: VITAMINS
     Route: 065
  5. NICOTINE [Concomitant]
     Active Substance: NICOTINE
     Route: 062
  6. One daily mens [Concomitant]
     Route: 065
  7. XTANDI [Concomitant]
     Active Substance: ENZALUTAMIDE
     Route: 065

REACTIONS (7)
  - Erectile dysfunction [Unknown]
  - Mood swings [Unknown]
  - Fatigue [Unknown]
  - Hot flush [Unknown]
  - Weight increased [Unknown]
  - Arthralgia [Unknown]
  - Arthritis [Unknown]
